FAERS Safety Report 7263895-2 (Version None)
Quarter: 2011Q1

REPORT INFORMATION
  Report Type: 
  Country: None (occurrence: None)
  Receive Date: 20110130
  Receipt Date: 20101208
  Transmission Date: 20110831
  Serious: No
  Sender: FDA-Public Use
  Company Number: US-ABBOTT-10P-163-0690252-00

PATIENT
  Sex: Female
  Weight: 83.082 kg

DRUGS (5)
  1. OTC VITAMIN D LIQ [Concomitant]
     Indication: VITAMIN SUPPLEMENTATION
     Dosage: 2 TSP QAM
     Route: 048
  2. MULTI-VITAMIN [Concomitant]
     Indication: VITAMIN SUPPLEMENTATION
     Route: 048
  3. HUMIRA [Suspect]
     Indication: RHEUMATOID ARTHRITIS
     Route: 058
     Dates: start: 20101001
  4. CALCIUM W/VITAMIN D [Concomitant]
     Indication: MINERAL SUPPLEMENTATION
     Route: 048
  5. OTC VITAMIN D LIQ [Concomitant]
     Indication: VITAMIN D DEFICIENCY

REACTIONS (1)
  - RASH [None]
